FAERS Safety Report 19180282 (Version 1)
Quarter: 2021Q2

REPORT INFORMATION
  Report Type: Spontaneous
  Country: US (occurrence: US)
  Receive Date: 20210426
  Receipt Date: 20210426
  Transmission Date: 20210717
  Serious: No
  Sender: FDA-Public Use
  Company Number: US-PFIZER INC-2021207180

PATIENT
  Age: 90 Year
  Sex: Female
  Weight: 64.41 kg

DRUGS (2)
  1. CELEBREX [Suspect]
     Active Substance: CELECOXIB
     Dosage: UNK
     Dates: start: 1980
  2. SELDANE [Suspect]
     Active Substance: TERFENADINE
     Dosage: UNK
     Dates: start: 1980

REACTIONS (1)
  - Drug ineffective [Unknown]
